FAERS Safety Report 15207735 (Version 1)
Quarter: 2018Q3

REPORT INFORMATION
  Report Type: Spontaneous
  Country: US (occurrence: US)
  Receive Date: 20180628
  Receipt Date: 20180628
  Transmission Date: 20181010
  Serious: Yes (Other)
  Sender: FDA-Public Use
  Company Number: None

PATIENT
  Age: 69 Year
  Sex: Male
  Weight: 96.75 kg

DRUGS (1)
  1. FLUTICASONE PROPIONATE NASAL SPRAY 50 MCG (PERSCRIPTION GRADE) [Suspect]
     Active Substance: FLUTICASONE PROPIONATE
     Indication: SINUSITIS
     Route: 055
     Dates: start: 20180501, end: 20180604

REACTIONS (2)
  - Palpitations [None]
  - Cold sweat [None]

NARRATIVE: CASE EVENT DATE: 20180506
